FAERS Safety Report 5293958-2 (Version None)
Quarter: 2007Q2

REPORT INFORMATION
  Report Type: 
  Country: None (occurrence: None)
  Receive Date: 20070405
  Receipt Date: 20070326
  Transmission Date: 20071010
  Serious: Yes (Other)
  Sender: FDA-Public Use
  Company Number: 2007BI006122

PATIENT
  Age: 44 Year
  Sex: Female
  Weight: 48.5349 kg

DRUGS (2)
  1. NATALIZUMAB [Suspect]
     Indication: MULTIPLE SCLEROSIS
     Dosage: 300 MG;QM;IV
     Route: 042
     Dates: start: 20070123, end: 20070123
  2. ATIVAN [Concomitant]

REACTIONS (12)
  - AGGRESSION [None]
  - BACK PAIN [None]
  - CONVULSION [None]
  - DEPRESSION [None]
  - FALL [None]
  - FATIGUE [None]
  - GAIT DISTURBANCE [None]
  - HAND FRACTURE [None]
  - IMPAIRED WORK ABILITY [None]
  - INSOMNIA [None]
  - STRESS [None]
  - WEIGHT DECREASED [None]
